FAERS Safety Report 9123755 (Version 1)
Quarter: 2013Q1

REPORT INFORMATION
  Report Type: Spontaneous
  Country: US (occurrence: US)
  Receive Date: 20130227
  Receipt Date: 20130227
  Transmission Date: 20140127
  Serious: No
  Sender: FDA-Public Use
  Company Number: US-BAYER-2013-022836

PATIENT
  Age: 95 Year
  Sex: Male
  Weight: 66 kg

DRUGS (10)
  1. ALEVE GELCAP [Suspect]
     Indication: MYALGIA
     Dosage: UNK
     Route: 048
     Dates: start: 20130203
  2. ALEVE GELCAP [Suspect]
     Indication: MYALGIA
     Dosage: 2 DF, BID
     Route: 048
  3. ONE-A-DAY MEN^S HEALTH [Concomitant]
  4. VITAMIN D [Concomitant]
  5. AMLODIPINE [Concomitant]
  6. FLOMAX [Concomitant]
  7. CALCIUM [Concomitant]
  8. SIMVASTATIN [Concomitant]
  9. CENTRUM [MINERALS NOS,VITAMINS NOS] [Concomitant]
  10. ASPIRIN [Concomitant]
     Indication: ISCHAEMIC HEART DISEASE PROPHYLAXIS

REACTIONS (2)
  - Overdose [None]
  - Incorrect drug administration duration [None]
